FAERS Safety Report 4571648-9 (Version None)
Quarter: 2005Q1

REPORT INFORMATION
  Report Type: 
  Country: None (occurrence: None)
  Receive Date: 20050203
  Receipt Date: 20050203
  Transmission Date: 20050727
  Serious: Yes (Other)
  Sender: FDA-Public Use
  Company Number: None

PATIENT
  Age: 45 Year
  Sex: Male
  Weight: 135.1719 kg

DRUGS (2)
  1. OROMORPH (OR OTHER GENERIC) [Suspect]
     Indication: BACK PAIN
     Dosage: 60 MG ONE BID
     Dates: start: 20010701, end: 20010801
  2. OROMORPH (OR OTHER GENERIC) [Suspect]
     Indication: LUMBAR RADICULOPATHY
     Dosage: 60 MG ONE BID
     Dates: start: 20010701, end: 20010801

REACTIONS (2)
  - DRUG EFFECT DECREASED [None]
  - PHARMACEUTICAL PRODUCT COMPLAINT [None]
